FAERS Safety Report 7209711-6 (Version None)
Quarter: 2011Q1

REPORT INFORMATION
  Report Type: 
  Country: None (occurrence: None)
  Receive Date: 20110104
  Receipt Date: 20101223
  Transmission Date: 20110831
  Serious: Yes (Life-Threatening)
  Sender: FDA-Public Use
  Company Number: FR-GILEAD-2010-0034605

PATIENT
  Sex: Female
  Weight: 65 kg

DRUGS (17)
  1. VALACICLOVIR [Concomitant]
     Indication: PROPHYLAXIS
     Dates: start: 20100922
  2. ESOMEPRAZOLE [Concomitant]
     Indication: PROPHYLAXIS
     Dates: start: 20100927
  3. AMLODIPINE [Concomitant]
     Indication: PROPHYLAXIS
     Dates: start: 20100927
  4. ENOXAPARIN SODIUM [Concomitant]
     Indication: PROPHYLAXIS
     Dates: start: 20100922
  5. TRIMEBUTINE [Suspect]
  6. NADROPARIN [Suspect]
     Indication: COAGULOPATHY
  7. RALTEGRAVIR [Concomitant]
  8. NICARDIPINE HYDROCHLORIDE [Suspect]
  9. BROMAZEPAM [Suspect]
  10. CELLCEPT [Concomitant]
     Indication: LIVER TRANSPLANT
     Dates: start: 20100922
  11. RABEPRAZOLE SODIUM [Suspect]
  12. MOXIFLOXACIN [Concomitant]
     Indication: TUBERCULOSIS
     Dates: start: 20100927
  13. MYAMBUTOL [Concomitant]
     Indication: TUBERCULOSIS
     Dates: start: 20100927
  14. TENOFOVIR DISOPROXIL FUMARATE [Suspect]
     Indication: HIV INFECTION
  15. LAMIVUDINE [Concomitant]
     Indication: HIV INFECTION
  16. TACROLIMUS [Concomitant]
     Indication: LIVER TRANSPLANT
     Dates: start: 20100922
  17. PREDNISONE [Concomitant]
     Indication: LIVER TRANSPLANT
     Dates: start: 20100922

REACTIONS (1)
  - HEPATIC ARTERY THROMBOSIS [None]
